FAERS Safety Report 5447977-3 (Version None)
Quarter: 2007Q3

REPORT INFORMATION
  Report Type: 
  Country: None (occurrence: None)
  Receive Date: 20070910
  Receipt Date: 20070827
  Transmission Date: 20080115
  Serious: No
  Sender: FDA-Public Use
  Company Number: US-BOEHRINGER INGELHEIM PHARMACEUTICALS, INC.-2007-BP-19914BP

PATIENT
  Age: 78 Year
  Sex: Female

DRUGS (3)
  1. SPIRIVA [Suspect]
     Route: 055
     Dates: start: 20070801
  2. PREDNISONE [Concomitant]
  3. VALIUM [Concomitant]

REACTIONS (2)
  - HYPOAESTHESIA [None]
  - NAUSEA [None]
